FAERS Safety Report 7424506-6 (Version None)
Quarter: 2011Q2

REPORT INFORMATION
  Report Type: 
  Country: None (occurrence: None)
  Receive Date: 20110419
  Receipt Date: 20110415
  Transmission Date: 20111010
  Serious: Yes (Hospitalization)
  Sender: FDA-Public Use
  Company Number: JP-B.I. PHARMACEUTICALS,INC./RIDGEFIELD-2011-BP-10789NB

PATIENT
  Age: 85 Year
  Sex: Female

DRUGS (5)
  1. PRAZAXA [Suspect]
     Dosage: 220 MG
     Route: 048
     Dates: start: 20110408
  2. GASTER D [Concomitant]
     Route: 065
  3. LASIX [Concomitant]
     Route: 065
  4. MAINTATE [Concomitant]
     Route: 065
  5. LIPITOR [Concomitant]
     Route: 065

REACTIONS (2)
  - CHEST PAIN [None]
  - VOMITING [None]
